FAERS Safety Report 14577668 (Version 1)
Quarter: 2018Q1

REPORT INFORMATION
  Report Type: Spontaneous
  Country: GB (occurrence: GB)
  Receive Date: 20180226
  Receipt Date: 20180226
  Transmission Date: 20180509
  Serious: Yes (Hospitalization)
  Sender: FDA-Public Use
  Company Number: None

PATIENT

DRUGS (1)
  1. COSENTYX [Suspect]
     Active Substance: SECUKINUMAB
     Indication: ANKYLOSING SPONDYLITIS
     Dosage: ?          QUANTITY:2 INJECTION(S);OTHER FREQUENCY:EVERY 4 WEEKS;?
     Route: 030
     Dates: start: 20170113

REACTIONS (8)
  - Abdominal pain upper [None]
  - Knee arthroplasty [None]
  - Colitis [None]
  - Gastrointestinal pain [None]
  - Diarrhoea [None]
  - Shoulder arthroplasty [None]
  - Erythema nodosum [None]
  - Intestinal haemorrhage [None]

NARRATIVE: CASE EVENT DATE: 20170407
